FAERS Safety Report 21228914 (Version 1)
Quarter: 2022Q3

REPORT INFORMATION
  Report Type: Spontaneous
  Country: US (occurrence: None)
  Receive Date: 20220818
  Receipt Date: 20220818
  Transmission Date: 20221027
  Serious: No
  Sender: FDA-Public Use
  Company Number: None

PATIENT
  Age: 43 Year
  Sex: Male

DRUGS (1)
  1. CAPECITABINE [Suspect]
     Active Substance: CAPECITABINE
     Dosage: OTHER FREQUENCY : UNKNOWN;?
     Route: 048

REACTIONS (4)
  - COVID-19 [None]
  - Pyrexia [None]
  - Stomatitis [None]
  - Rash [None]

NARRATIVE: CASE EVENT DATE: 20220601
